FAERS Safety Report 6767567-X (Version None)
Quarter: 2010Q2

REPORT INFORMATION
  Report Type: 
  Country: None (occurrence: None)
  Receive Date: 20100614
  Receipt Date: 20100601
  Transmission Date: 20101027
  Serious: Yes (Hospitalization, Other)
  Sender: FDA-Public Use
  Company Number: PHHY2009JP53275

PATIENT
  Sex: Male
  Weight: 59 kg

DRUGS (17)
  1. DIOVAN [Suspect]
     Indication: HYPERTENSION
     Dosage: 80 MG, QD
     Route: 048
     Dates: start: 20071129, end: 20071214
  2. DIOVAN [Suspect]
     Dosage: 40 MG, QD
     Route: 048
     Dates: start: 20071214, end: 20071228
  3. DIOVAN [Suspect]
     Dosage: 80 MG, QD
     Route: 048
     Dates: start: 20071229
  4. NORVASC [Concomitant]
     Indication: HYPERTENSION
     Dosage: 5 MG, UNK
     Route: 048
     Dates: start: 20070408
  5. NORVASC [Concomitant]
     Dosage: 10 MG
     Route: 048
  6. LANIRAPID [Concomitant]
     Dosage: 0.025 MG, UNK
     Route: 048
     Dates: start: 20070901
  7. FUROSEMIDE [Concomitant]
     Dosage: 10 MG, UNK
     Route: 048
     Dates: start: 20070901
  8. OPALMON [Concomitant]
     Dosage: 15 UG, UNK
     Route: 048
     Dates: start: 20070901
  9. NICORANTA [Concomitant]
     Dosage: 15 MG, UNK
     Route: 048
     Dates: start: 20070901
  10. BAYASPIRIN [Concomitant]
     Dosage: 200 MG, UNK
     Route: 048
     Dates: start: 20070901
  11. TICLOPIDINE HYDROCHLORIDE [Concomitant]
     Dosage: 200 MG, UNK
     Route: 048
     Dates: start: 20070901
  12. ISOSORBIDE MONONITRATE [Concomitant]
     Dosage: 40 MG, UNK
     Route: 048
     Dates: start: 20070901
  13. FAMOTIDINE [Concomitant]
     Dosage: 40 MG, UNK
     Route: 048
     Dates: start: 20070901
  14. WARFARIN [Concomitant]
     Dosage: 1.75 MG, UNK
     Route: 048
     Dates: start: 20070901
  15. FRANDOL S [Concomitant]
     Dosage: 40 MG, UNK
     Route: 062
     Dates: start: 20070901
  16. LASIX [Concomitant]
     Dosage: 20 MG, UNK
     Route: 048
     Dates: start: 20091110
  17. RIBALL [Concomitant]
     Dosage: 100 MG, UNK
     Route: 048
     Dates: start: 20091010

REACTIONS (7)
  - ANGIOPLASTY [None]
  - BLOOD CREATININE INCREASED [None]
  - BLOOD POTASSIUM INCREASED [None]
  - BLOOD URIC ACID INCREASED [None]
  - CARDIAC FAILURE [None]
  - RENAL ARTERY STENOSIS [None]
  - STENT PLACEMENT [None]
